FAERS Safety Report 11801929 (Version 5)
Quarter: 2024Q4

REPORT INFORMATION
  Report Type: Spontaneous
  Country: US (occurrence: US)
  Receive Date: 20151204
  Receipt Date: 20241118
  Transmission Date: 20250115
  Serious: Yes (Hospitalization, Other)
  Sender: PFIZER
  Company Number: US-MLMSERVICE-20151120-0083210-1

PATIENT
  Age: 61 Year
  Sex: Male

DRUGS (4)
  1. CISPLATIN [Suspect]
     Active Substance: CISPLATIN
     Indication: Lung squamous cell carcinoma stage III
     Dosage: 3 CYCLES, FIRST LINE THERAPY, FREQ: CYCLICAL
  2. GEMCITABINE HYDROCHLORIDE [Suspect]
     Active Substance: GEMCITABINE HYDROCHLORIDE
     Indication: Lung squamous cell carcinoma stage III
     Dosage: 3 CYCLES, FIRST LINE THERAPY, FREQ: CYCLICAL
  3. DOCETAXEL [Suspect]
     Active Substance: DOCETAXEL
     Indication: Lung squamous cell carcinoma stage III
     Dosage: 3 CYCLES, SECOND LINE THERAPY, FREQ: CYCLICAL
  4. CARBOPLATIN [Suspect]
     Active Substance: CARBOPLATIN
     Indication: Lung squamous cell carcinoma stage III
     Dosage: 3 CYCLES, SECOND LINE THERAPY, FREQ: CYCLICAL

REACTIONS (1)
  - Pulmonary tuberculosis [Unknown]
